FAERS Safety Report 13576344 (Version 1)
Quarter: 2017Q2

REPORT INFORMATION
  Report Type: Spontaneous
  Country: CA (occurrence: CA)
  Receive Date: 20170524
  Receipt Date: 20170524
  Transmission Date: 20170830
  Serious: Yes (Life-Threatening, Hospitalization, Other)
  Sender: FDA-Public Use
  Company Number: CA-SUN PHARMACEUTICAL INDUSTRIES LTD-2017US-136478

PATIENT
  Age: 3 Year
  Sex: Male
  Weight: 15 kg

DRUGS (5)
  1. MORPHINE [Suspect]
     Active Substance: MORPHINE
     Dosage: RECEIVED TWO ADDITIONAL DOSES OF MORPHINE; DAY 1
     Route: 048
  2. MORPHINE [Suspect]
     Active Substance: MORPHINE
     Indication: ADENOTONSILLECTOMY
     Dosage: RECEIVED TWO DOSES OF 3 ML AT A CONCENTRATION OF 5 MG/ML, OR 15 MG (1 MG/KG PER DOSE)
     Route: 048
  3. PARACETAMOL [Concomitant]
     Active Substance: ACETAMINOPHEN
     Dosage: TWO ADDITIONAL DOSES OF ACETAMINOPHEN
     Route: 048
  4. PARACETAMOL [Concomitant]
     Active Substance: ACETAMINOPHEN
     Indication: ADENOTONSILLECTOMY
     Dosage: 15 MG/KG PER DOSE FOR FIVE DAYS
     Route: 048
  5. MORPHINE [Suspect]
     Active Substance: MORPHINE
     Indication: PRODUCT USED FOR UNKNOWN INDICATION
     Dosage: 0.2 MG/KG PER DOSE FIVE DAYS
     Route: 048

REACTIONS (9)
  - Toxicity to various agents [Recovered/Resolved]
  - Tremor [Recovered/Resolved]
  - Accidental poisoning [Recovered/Resolved]
  - Miosis [Recovered/Resolved]
  - Tachycardia [Recovered/Resolved]
  - Generalised tonic-clonic seizure [Recovered/Resolved]
  - Drug dispensing error [Recovered/Resolved]
  - Respiratory depression [Recovered/Resolved]
  - Somnolence [Recovered/Resolved]
